FAERS Safety Report 24306422 (Version 3)
Quarter: 2025Q1

REPORT INFORMATION
  Report Type: Spontaneous
  Country: US (occurrence: US)
  Receive Date: 20240911
  Receipt Date: 20250206
  Transmission Date: 20250409
  Serious: No
  Sender: SANOFI AVENTIS
  Company Number: US-SA-2024SA261784

PATIENT
  Age: 63 Year
  Sex: Male

DRUGS (2)
  1. DUPIXENT [Suspect]
     Active Substance: DUPILUMAB
     Indication: Asthma
     Dosage: 300 MG, QOW
     Route: 058
     Dates: end: 202411
  2. BUDESONIDE [Concomitant]
     Active Substance: BUDESONIDE
     Dates: start: 202501

REACTIONS (12)
  - Blood pressure systolic decreased [Unknown]
  - Eye injury [Recovering/Resolving]
  - Chromaturia [Unknown]
  - Urine abnormality [Unknown]
  - Dehydration [Unknown]
  - Eye disorder [Recovering/Resolving]
  - Contusion [Unknown]
  - Rotator cuff syndrome [Unknown]
  - Ligament sprain [Unknown]
  - Dry eye [Recovering/Resolving]
  - Arthralgia [Unknown]
  - Intentional product use issue [Unknown]
